FAERS Safety Report 25691118 (Version 2)
Quarter: 2025Q3

REPORT INFORMATION
  Report Type: Spontaneous
  Country: US (occurrence: US)
  Receive Date: 20250818
  Receipt Date: 20250821
  Transmission Date: 20251020
  Serious: Yes (Life-Threatening, Hospitalization, Other)
  Sender: PFIZER
  Company Number: US-PFIZER INC-PV202500098710

PATIENT
  Age: 17 Year
  Sex: Female

DRUGS (5)
  1. METHYLPREDNISOLONE SODIUM SUCCINATE [Suspect]
     Active Substance: METHYLPREDNISOLONE SODIUM SUCCINATE
     Indication: Asthmatic crisis
     Dosage: 480 MG, DAILY
     Route: 042
     Dates: start: 19860822
  2. METHYLPREDNISOLONE SODIUM SUCCINATE [Suspect]
     Active Substance: METHYLPREDNISOLONE SODIUM SUCCINATE
     Dosage: EVENTUALLY TAPERED
     Route: 042
  3. VECURONIUM [Suspect]
     Active Substance: VECURONIUM BROMIDE
     Indication: Asthmatic crisis
     Route: 041
     Dates: start: 19860822, end: 198608
  4. TERBUTALINE [Concomitant]
     Active Substance: TERBUTALINE
     Indication: Asthmatic crisis
     Route: 042
     Dates: start: 19860822
  5. AMINOPHYLLINE [Concomitant]
     Active Substance: AMINOPHYLLINE
     Indication: Asthmatic crisis
     Route: 042
     Dates: start: 19860822

REACTIONS (1)
  - Myopathy [Recovered/Resolved]
